FAERS Safety Report 8169998-2 (Version None)
Quarter: 2012Q1

REPORT INFORMATION
  Report Type: 
  Country: None (occurrence: None)
  Receive Date: 20120228
  Receipt Date: 20120222
  Transmission Date: 20120608
  Serious: Yes (Death)
  Sender: FDA-Public Use
  Company Number: IT-ELI_LILLY_AND_COMPANY-IT201202006274

PATIENT
  Sex: Male

DRUGS (1)
  1. HUMATROPE [Suspect]

REACTIONS (1)
  - DEATH [None]
